FAERS Safety Report 8281796-8 (Version None)
Quarter: 2012Q2

REPORT INFORMATION
  Report Type: 
  Country: None (occurrence: None)
  Receive Date: 20120413
  Receipt Date: 20120403
  Transmission Date: 20120825
  Serious: Yes (Hospitalization)
  Sender: FDA-Public Use
  Company Number: PHEH2012US007348

PATIENT
  Sex: Male
  Weight: 72 kg

DRUGS (15)
  1. NEUPOGEN [Concomitant]
     Dosage: 480 UG, UNK
     Route: 058
  2. ZOFRAN [Concomitant]
     Dosage: 04 MG, UNK
     Route: 048
  3. LIDOCAINE [Concomitant]
     Dosage: 03 %, UNK
  4. GLEEVEC [Suspect]
     Dosage: 400 MG, BID
     Route: 048
     Dates: start: 20120210
  5. OXYCODONE HCL [Concomitant]
     Dosage: 05 MG, UNK
     Route: 048
  6. DIFLUCAN [Concomitant]
     Dosage: 100 MG, UNK
  7. BACTRIM [Concomitant]
     Dosage: 400 MG, UNK
     Route: 048
  8. SALINEX NASAL [Concomitant]
  9. CALMOSEPTINE [Concomitant]
  10. MELATONIN [Concomitant]
     Dosage: 03 MG, UNK
     Route: 048
  11. AMBIEN [Concomitant]
     Dosage: 05 MG, UNK
     Route: 048
  12. MARINOL [Concomitant]
     Dosage: 05 MG, UNK
     Route: 048
  13. CELEXA [Concomitant]
     Dosage: 10 MG, UNK
     Route: 048
  14. ZANTAC [Concomitant]
     Route: 048
  15. PHOS-NAK [Concomitant]

REACTIONS (4)
  - NAUSEA [None]
  - VIRAL INFECTION [None]
  - VOMITING [None]
  - HEADACHE [None]
